FAERS Safety Report 10041331 (Version 4)
Quarter: 2014Q2

REPORT INFORMATION
  Report Type: Report from Study
  Country: CA (occurrence: CA)
  Receive Date: 20140327
  Receipt Date: 20140409
  Transmission Date: 20141212
  Serious: Yes (Hospitalization)
  Sender: FDA-Public Use
  Company Number: CA-ROCHE-1308744

PATIENT
  Age: 48 Year
  Sex: Male
  Weight: 92 kg

DRUGS (7)
  1. AVASTIN [Suspect]
     Indication: ANAPLASTIC ASTROCYTOMA
     Route: 042
     Dates: start: 20131028, end: 20140305
  2. DILANTIN [Concomitant]
     Route: 065
  3. DILANTIN [Concomitant]
     Route: 065
  4. ACEBUTOLOL [Concomitant]
     Route: 065
  5. FENO-MICRO [Concomitant]
     Route: 065
  6. OMEPRAZOLE [Concomitant]
     Route: 065
  7. CLONAZEPAM [Concomitant]
     Route: 065

REACTIONS (12)
  - Confusional state [Not Recovered/Not Resolved]
  - Disease progression [Unknown]
  - Abdominal pain [Recovered/Resolved]
  - Nasopharyngitis [Unknown]
  - White blood cell count decreased [Unknown]
  - Platelet count decreased [Unknown]
  - Monocyte count increased [Unknown]
  - Neutrophil count decreased [Unknown]
  - Eosinophil count increased [Unknown]
  - Cough [Recovering/Resolving]
  - Rhinorrhoea [Unknown]
  - Off label use [Unknown]
